FAERS Safety Report 25000561 (Version 1)
Quarter: 2025Q1

REPORT INFORMATION
  Report Type: Spontaneous
  Country: MX (occurrence: MX)
  Receive Date: 20250222
  Receipt Date: 20250222
  Transmission Date: 20250409
  Serious: No
  Sender: ANI
  Company Number: MX-ANIPHARMA-015675

PATIENT
  Sex: Female
  Weight: 55 kg

DRUGS (2)
  1. FLUVOXAMINE [Suspect]
     Active Substance: FLUVOXAMINE
     Indication: Obsessive-compulsive disorder
     Dates: start: 202412, end: 202412
  2. FLUVOXAMINE [Suspect]
     Active Substance: FLUVOXAMINE
     Indication: Antidepressant therapy
     Dates: start: 202412, end: 202412

REACTIONS (4)
  - Tachycardia [Unknown]
  - Drug ineffective [Unknown]
  - Anxiety [Unknown]
  - Treatment noncompliance [Unknown]
